FAERS Safety Report 4739606-9 (Version None)
Quarter: 2005Q3

REPORT INFORMATION
  Report Type: 
  Country: None (occurrence: None)
  Receive Date: 20050810
  Receipt Date: 20050412
  Transmission Date: 20060218
  Serious: No
  Sender: FDA-Public Use
  Company Number: US-GLAXOSMITHKLINE-A0553771A

PATIENT
  Age: 70 Year
  Sex: Female

DRUGS (4)
  1. PAXIL [Suspect]
     Indication: DEPRESSION
     Dosage: 20MG TWICE PER DAY
     Route: 048
  2. MEVACOR [Concomitant]
  3. ACTONEL [Concomitant]
  4. VALIUM [Concomitant]

REACTIONS (1)
  - DRY MOUTH [None]
